FAERS Safety Report 10027291 (Version 1)
Quarter: 2014Q1

REPORT INFORMATION
  Report Type: Spontaneous
  Country: US (occurrence: US)
  Receive Date: 20140321
  Receipt Date: 20140321
  Transmission Date: 20141002
  Serious: Yes (Hospitalization)
  Sender: FDA-Public Use
  Company Number: US-ASTELLAS-2014US002758

PATIENT
  Sex: Male

DRUGS (1)
  1. TARCEVA [Suspect]
     Indication: TRACHEAL CANCER
     Dosage: 100 MG, UID/QD
     Route: 048
     Dates: start: 20131024

REACTIONS (3)
  - Off label use [Unknown]
  - Spinal fracture [Unknown]
  - Fall [Unknown]
